FAERS Safety Report 13561279 (Version 1)
Quarter: 2017Q2

REPORT INFORMATION
  Report Type: Spontaneous
  Country: AU (occurrence: AU)
  Receive Date: 20170518
  Receipt Date: 20170518
  Transmission Date: 20170830
  Serious: Yes (Other)
  Sender: FDA-Public Use
  Company Number: AU-SUN PHARMACEUTICAL INDUSTRIES LTD-2017RR-140253

PATIENT
  Age: 81 Year
  Sex: Male

DRUGS (7)
  1. ACETAZOLAMIDE. [Suspect]
     Active Substance: ACETAZOLAMIDE
     Indication: GLAUCOMA DRUG THERAPY
     Dosage: 125 MG, TID
     Route: 061
  2. TIMOLOL. [Suspect]
     Active Substance: TIMOLOL
     Indication: GLAUCOMA DRUG THERAPY
     Dosage: 0.5 %, BID
     Route: 065
  3. BRIMONIDINE [Suspect]
     Active Substance: BRIMONIDINE TARTRATE
     Indication: GLAUCOMA DRUG THERAPY
     Dosage: 0.2 %
     Route: 065
  4. APRACLONIDINE [Suspect]
     Active Substance: APRACLONIDINE HYDROCHLORIDE
     Indication: GLAUCOMA DRUG THERAPY
     Dosage: 0.5 %, QID
     Route: 061
  5. TAMSULOSIN [Suspect]
     Active Substance: TAMSULOSIN
     Indication: PRODUCT USED FOR UNKNOWN INDICATION
     Dosage: UNK
     Route: 048
  6. ACETAZOLAMIDE. [Suspect]
     Active Substance: ACETAZOLAMIDE
     Indication: GLAUCOMA DRUG THERAPY
     Dosage: 125 MG, BID
     Route: 061
  7. PILOCARPINE. [Suspect]
     Active Substance: PILOCARPINE
     Indication: GLAUCOMA DRUG THERAPY
     Dosage: 2 %, QID
     Route: 065

REACTIONS (3)
  - Floppy iris syndrome [Recovering/Resolving]
  - Glaucoma [Recovering/Resolving]
  - Drug ineffective [Unknown]
